FAERS Safety Report 20696356 (Version 1)
Quarter: 2022Q2

REPORT INFORMATION
  Report Type: Spontaneous
  Country: US (occurrence: US)
  Receive Date: 20220411
  Receipt Date: 20220411
  Transmission Date: 20220721
  Serious: No
  Sender: FDA-Public Use
  Company Number: US-KVK-TECH, INC-20210500058

PATIENT
  Sex: Female
  Weight: 92.971 kg

DRUGS (1)
  1. PHENTERMINE HYDROCHLORIDE [Suspect]
     Active Substance: PHENTERMINE HYDROCHLORIDE
     Indication: Weight decreased
     Dosage: 37.5 MILLIGRAM, PRN (SHE TOOK HALF THE MEDICATION SPORADICALLY AND DID NOT TAKE IT EVERY DAY)
     Route: 048
     Dates: start: 2021, end: 2021

REACTIONS (2)
  - Exposure during pregnancy [Unknown]
  - Incorrect dose administered [Unknown]

NARRATIVE: CASE EVENT DATE: 20210101
